FAERS Safety Report 15621217 (Version 2)
Quarter: 2018Q4

REPORT INFORMATION
  Report Type: Report from Study
  Country: US (occurrence: US)
  Receive Date: 20181115
  Receipt Date: 20181218
  Transmission Date: 20190205
  Serious: Yes (Other)
  Sender: FDA-Public Use
  Company Number: PHEH2018US047559

PATIENT
  Sex: Male
  Weight: 102.9 kg

DRUGS (2)
  1. ENTRESTO [Suspect]
     Active Substance: SACUBITRIL\VALSARTAN
     Indication: EJECTION FRACTION DECREASED
     Dosage: 1 DF (24/26 MG), BID
     Route: 048
     Dates: start: 20181008, end: 20181026
  2. ENTRESTO [Suspect]
     Active Substance: SACUBITRIL\VALSARTAN
     Dosage: 1 DF (49/51 MG), BID
     Route: 048
     Dates: start: 20181026

REACTIONS (1)
  - Deafness [Unknown]
